FAERS Safety Report 9348430 (Version 2)
Quarter: 2013Q2

REPORT INFORMATION
  Report Type: Spontaneous
  Country: US (occurrence: US)
  Receive Date: 20130614
  Receipt Date: 20130628
  Transmission Date: 20140414
  Serious: No
  Sender: FDA-Public Use
  Company Number: US-PFIZER INC-2013178729

PATIENT
  Sex: Male

DRUGS (2)
  1. LYRICA [Suspect]
     Indication: HERPES ZOSTER
     Dosage: UNK
  2. NEURONTIN [Suspect]
     Indication: PAIN
     Dosage: UNK
     Dates: start: 201306

REACTIONS (3)
  - Rash [Not Recovered/Not Resolved]
  - Pain [Unknown]
  - Drug ineffective [Unknown]
